FAERS Safety Report 8241840 (Version 4)
Quarter: 2012Q4

REPORT INFORMATION
  Report Type: Report from Study
  Country: DE (occurrence: DE)
  Receive Date: 20111111
  Receipt Date: 20121228
  Transmission Date: 20130627
  Serious: Yes (Hospitalization)
  Sender: FDA-Public Use
  Company Number: DE-ABBOTT-11P-062-0872345-00

PATIENT
  Age: 53 None
  Sex: Male
  Weight: 102 kg

DRUGS (13)
  1. HUMIRA 40 MG/ 0.8 ML PRE-FILLED SYRINGE [Suspect]
     Indication: RHEUMATOID ARTHRITIS
     Route: 058
     Dates: start: 20100813, end: 20110916
  2. HUMIRA 40 MG/ 0.8 ML PRE-FILLED SYRINGE [Suspect]
     Route: 058
     Dates: start: 20111021
  3. MTX [Suspect]
     Indication: RHEUMATOID ARTHRITIS
     Dates: start: 20110308, end: 20110926
  4. MTX [Suspect]
     Dates: start: 20120216
  5. PREDNISOLONE [Suspect]
     Indication: RHEUMATOID ARTHRITIS
     Dates: start: 20061006
  6. PANTOPRAZOL [Concomitant]
     Indication: PRODUCT USED FOR UNKNOWN INDICATION
  7. DICLAC [Concomitant]
     Indication: PRODUCT USED FOR UNKNOWN INDICATION
     Dates: start: 200509
  8. OMEPRAZOL [Concomitant]
     Indication: PRODUCT USED FOR UNKNOWN INDICATION
     Dates: start: 200701
  9. CALCIUM D3 [Concomitant]
     Indication: PRODUCT USED FOR UNKNOWN INDICATION
     Dates: start: 200701
  10. FOLIC ACID [Concomitant]
     Indication: PRODUCT USED FOR UNKNOWN INDICATION
     Dates: start: 201103
  11. GLUCOCORTICOIDS [Concomitant]
     Indication: PRODUCT USED FOR UNKNOWN INDICATION
     Dosage: 7.5 mg daily
     Dates: start: 20111107, end: 20120314
  12. GLUCOCORTICOIDS [Concomitant]
     Dosage: 6.25 mg daily
     Dates: start: 20120315, end: 20120329
  13. GLUCOCORTICOIDS [Concomitant]
     Dosage: 5 mg daily
     Dates: start: 20120330

REACTIONS (3)
  - Acute respiratory failure [Recovered/Resolved]
  - Atypical pneumonia [Recovered/Resolved]
  - Thrombocytopenia [Recovered/Resolved]
